FAERS Safety Report 4705341-6 (Version None)
Quarter: 2005Q2

REPORT INFORMATION
  Report Type: 
  Country: None (occurrence: None)
  Receive Date: 20050630
  Receipt Date: 20050630
  Transmission Date: 20051028
  Serious: Yes (Other)
  Sender: FDA-Public Use
  Company Number: None

PATIENT
  Age: 14 Year
  Sex: Male
  Weight: 84.369 kg

DRUGS (5)
  1. LEXAPRO [Suspect]
     Dosage: 10 MG PO QD
     Route: 048
     Dates: start: 20040803, end: 20041014
  2. RISPERDAL [Concomitant]
  3. TETRACYCLINE [Concomitant]
  4. TRILEPTIAL [Concomitant]
  5. STRATTERA [Concomitant]

REACTIONS (1)
  - AGGRESSION [None]
